FAERS Safety Report 5164493-7 (Version None)
Quarter: 2006Q4

REPORT INFORMATION
  Report Type: 
  Country: None (occurrence: None)
  Receive Date: 20061205
  Receipt Date: 20061106
  Transmission Date: 20070319
  Serious: Yes (Death, Life-Threatening, Hospitalization)
  Sender: FDA-Public Use
  Company Number: JP-BRISTOL-MYERS SQUIBB COMPANY-13567888

PATIENT
  Age: 85 Year
  Sex: Female

DRUGS (4)
  1. BLEOMYCIN [Suspect]
     Indication: HODGKIN'S DISEASE STAGE III
     Dates: start: 20060327, end: 20060802
  2. VINBLASTINE [Concomitant]
     Indication: HODGKIN'S DISEASE STAGE III
     Dates: start: 20060327, end: 20060802
  3. ADRIAMYCIN PFS [Concomitant]
     Indication: HODGKIN'S DISEASE STAGE III
     Dates: start: 20060327, end: 20060802
  4. DACARBAZINE [Concomitant]
     Indication: HODGKIN'S DISEASE STAGE III
     Dates: start: 20060327, end: 20060802

REACTIONS (3)
  - INTERSTITIAL LUNG DISEASE [None]
  - PNEUMONIA BACTERIAL [None]
  - PULMONARY HAEMORRHAGE [None]
